FAERS Safety Report 5442800-5 (Version None)
Quarter: 2007Q3

REPORT INFORMATION
  Report Type: 
  Country: None (occurrence: None)
  Receive Date: 20070904
  Receipt Date: 20070815
  Transmission Date: 20080115
  Serious: No
  Sender: FDA-Public Use
  Company Number: US-BOEHRINGER INGELHEIM PHARMACEUTICALS, INC.-2007-BP-19358BP

PATIENT
  Age: 80 Year
  Sex: Female

DRUGS (3)
  1. MICARDIS [Suspect]
     Indication: HYPERTENSION
     Route: 048
     Dates: start: 20070401
  2. NORVASC [Concomitant]
     Indication: HYPERTENSION
  3. COUMADIN [Concomitant]
     Indication: ATRIAL FIBRILLATION

REACTIONS (5)
  - DRY EYE [None]
  - DRY MOUTH [None]
  - DRY SKIN [None]
  - PRURITUS GENERALISED [None]
  - RASH [None]
